FAERS Safety Report 21101407 (Version 1)
Quarter: 2022Q3

REPORT INFORMATION
  Report Type: Spontaneous
  Country: JP (occurrence: JP)
  Receive Date: 20220719
  Receipt Date: 20220719
  Transmission Date: 20221027
  Serious: Yes (Hospitalization)
  Sender: FDA-Public Use
  Company Number: JP-TEVA-2022-JP-2055659

PATIENT
  Age: 16 Year
  Sex: Female

DRUGS (5)
  1. ARIPIPRAZOLE [Suspect]
     Active Substance: ARIPIPRAZOLE
     Indication: Schizophrenia
     Dosage: 30 MILLIGRAM DAILY; EVERY MORNING
     Route: 048
  2. LEVOMEPROMAZINE [Suspect]
     Active Substance: LEVOMEPROMAZINE
     Indication: Schizophrenia
     Dosage: 150 MILLIGRAM DAILY;
     Route: 048
  3. PALIPERIDONE [Suspect]
     Active Substance: PALIPERIDONE
     Indication: Schizophrenia
     Dosage: 6 MILLIGRAM DAILY; INTERVAL: EVERY MORNING
     Route: 048
  4. THIOPENTAL [Suspect]
     Active Substance: THIOPENTAL
     Indication: Induction of anaesthesia
     Route: 042
  5. SUCCINYLCHOLINE [Concomitant]
     Active Substance: SUCCINYLCHOLINE
     Indication: Induction of anaesthesia
     Route: 065

REACTIONS (2)
  - Drug ineffective [Unknown]
  - Negative pressure pulmonary oedema [Recovering/Resolving]
